FAERS Safety Report 4576105-1 (Version None)
Quarter: 2005Q1

REPORT INFORMATION
  Report Type: 
  Country: None (occurrence: None)
  Receive Date: 20050204
  Receipt Date: 20050126
  Transmission Date: 20050727
  Serious: Yes (Other)
  Sender: FDA-Public Use
  Company Number: S05-UKI-00412-01

PATIENT
  Age: 73 Year
  Sex: Female

DRUGS (3)
  1. MEMANTINE HCL [Suspect]
     Indication: DEMENTIA
     Dosage: 10 MG BID PO
     Route: 048
     Dates: start: 20041005, end: 20041201
  2. ZOPICLONE [Concomitant]
  3. DISPERSIBLE ASPIRIN (ACETYLSALICYLIC ACID) [Concomitant]

REACTIONS (2)
  - CYSTITIS [None]
  - POLLAKIURIA [None]
